FAERS Safety Report 19110027 (Version 1)
Quarter: 2021Q2

REPORT INFORMATION
  Report Type: Spontaneous
  Country: BR (occurrence: BR)
  Receive Date: 20210408
  Receipt Date: 20210408
  Transmission Date: 20210717
  Serious: Yes (Other)
  Sender: FDA-Public Use
  Company Number: BR-ROCHE-2801745

PATIENT
  Age: 76 Year
  Sex: Female

DRUGS (1)
  1. ACTEMRA [Suspect]
     Active Substance: TOCILIZUMAB
     Indication: COVID-19
     Route: 065
     Dates: start: 20210225

REACTIONS (4)
  - Off label use [Unknown]
  - Pneumothorax [Not Recovered/Not Resolved]
  - COVID-19 [Unknown]
  - Pneumoperitoneum [Not Recovered/Not Resolved]
